FAERS Safety Report 7396142-1 (Version None)
Quarter: 2011Q2

REPORT INFORMATION
  Report Type: 
  Country: None (occurrence: None)
  Receive Date: 20110406
  Receipt Date: 20110326
  Transmission Date: 20111010
  Serious: Yes (Death, Other)
  Sender: FDA-Public Use
  Company Number: ES-PAR PHARMACEUTICAL, INC-2011SCPR002826

PATIENT
  Age: 66 Year
  Sex: Female

DRUGS (1)
  1. IBUPROFEN [Suspect]
     Indication: BACK PAIN
     Dosage: UNK, UNKNOWN
     Route: 065

REACTIONS (2)
  - DISEASE RECURRENCE [None]
  - CUTANEOUS LUPUS ERYTHEMATOSUS [None]
